FAERS Safety Report 5054979-8 (Version None)
Quarter: 2006Q3

REPORT INFORMATION
  Report Type: 
  Country: None (occurrence: None)
  Receive Date: 20060719
  Receipt Date: 20060717
  Transmission Date: 20061208
  Serious: Yes (Death)
  Sender: FDA-Public Use
  Company Number: US-GLAXOSMITHKLINE-A0612688A

PATIENT
  Sex: Male

DRUGS (1)
  1. WELLBUTRIN XL [Suspect]
     Dosage: 300MG PER DAY

REACTIONS (5)
  - COMPLETED SUICIDE [None]
  - INTENTIONAL OVERDOSE [None]
  - MANIA [None]
  - PANIC REACTION [None]
  - PARANOIA [None]
